FAERS Safety Report 6394686-2 (Version None)
Quarter: 2009Q4

REPORT INFORMATION
  Report Type: 
  Country: None (occurrence: None)
  Receive Date: 20091009
  Receipt Date: 20090928
  Transmission Date: 20100525
  Serious: No
  Sender: FDA-Public Use
  Company Number: PHEH2009US12479

PATIENT
  Sex: Male

DRUGS (6)
  1. TASIGNA [Suspect]
     Indication: CHRONIC MYELOID LEUKAEMIA
     Dosage: 400 MG, BID
     Route: 048
     Dates: start: 20080422
  2. LUNESTA [Concomitant]
  3. SYNTHROID [Concomitant]
  4. CYCLOSPORINE [Concomitant]
  5. REMICADE [Concomitant]
  6. LOMOTIL [Concomitant]

REACTIONS (1)
  - MEDICATION ERROR [None]
